FAERS Safety Report 20837195 (Version 1)
Quarter: 2022Q2

REPORT INFORMATION
  Report Type: Report from Study
  Country: CN (occurrence: CN)
  Receive Date: 20220517
  Receipt Date: 20220517
  Transmission Date: 20220721
  Serious: Yes (Other)
  Sender: FDA-Public Use
  Company Number: CN-AUROBINDO-AUR-APL-2022-017578

PATIENT

DRUGS (6)
  1. MELPHALAN [Suspect]
     Active Substance: MELPHALAN
     Indication: Lymphoma
     Dosage: 140 MILLIGRAM/SQ. METER
     Route: 042
  2. CYTARABINE [Suspect]
     Active Substance: CYTARABINE
     Indication: Lymphoma
     Dosage: 200 MILLIGRAM/SQ. METER, TWO TIMES A DAY(4 TO 7 DAYS TOTAL OF 1600 MG)
     Route: 042
  3. CYTARABINE [Suspect]
     Active Substance: CYTARABINE
     Dosage: 1600 MILLIGRAM (TOTAL DOSE 4 TO 7 DAYS PRIOR 1000 MG)
     Route: 042
  4. ETOPOSIDE [Suspect]
     Active Substance: ETOPOSIDE
     Indication: Lymphoma
     Dosage: 100 MILLIGRAM/SQ. METER, TWO TIMES A DAY, (4?7 DAYS TOTAL 800 MG)
     Route: 042
  5. ETOPOSIDE [Suspect]
     Active Substance: ETOPOSIDE
     Dosage: 800 MILLIGRAM(TOTAL DOSE 4 TO 7 DAYS PRIOR 800 MG)
     Route: 042
  6. SEMUSTINE [Suspect]
     Active Substance: SEMUSTINE
     Indication: Lymphoma
     Dosage: 250 MILLIGRAM/SQ. METER, 3 TIMES A DAY
     Route: 048

REACTIONS (2)
  - Cardiotoxicity [Recovered/Resolved]
  - Ventricular extrasystoles [Recovered/Resolved]
